FAERS Safety Report 9096126 (Version 2)
Quarter: 2013Q1

REPORT INFORMATION
  Report Type: Report from Study
  Country: US (occurrence: US)
  Receive Date: 20130207
  Receipt Date: 20130312
  Transmission Date: 20140127
  Serious: Yes (Death)
  Sender: FDA-Public Use
  Company Number: US-ROCHE-1188737

PATIENT
  Sex: Female

DRUGS (1)
  1. AVASTIN [Suspect]
     Indication: MALIGNANT MELANOMA
     Route: 065
     Dates: end: 20130122

REACTIONS (3)
  - Disease progression [Fatal]
  - Pneumonia [Fatal]
  - Respiratory failure [Fatal]
